FAERS Safety Report 15432615 (Version 1)
Quarter: 2018Q3

REPORT INFORMATION
  Report Type: Spontaneous
  Country: IT (occurrence: IT)
  Receive Date: 20180927
  Receipt Date: 20180927
  Transmission Date: 20181010
  Serious: Yes (Death, Other)
  Sender: FDA-Public Use
  Company Number: IT-ABBVIE-18K-083-2499869-00

PATIENT
  Age: 52 Year
  Sex: Female

DRUGS (2)
  1. BORTEZOMIB. [Concomitant]
     Active Substance: BORTEZOMIB
     Indication: DOUBLE HIT LYMPHOMA
     Dates: start: 20180806, end: 20180913
  2. VENETOCLAX. [Suspect]
     Active Substance: VENETOCLAX
     Indication: DOUBLE HIT LYMPHOMA
     Route: 048
     Dates: start: 20180806, end: 20180913

REACTIONS (3)
  - Off label use [Unknown]
  - Tumour lysis syndrome [Recovered/Resolved]
  - Double hit lymphoma [Fatal]

NARRATIVE: CASE EVENT DATE: 2018
